FAERS Safety Report 9126935 (Version 1)
Quarter: 2013Q1

REPORT INFORMATION
  Report Type: Spontaneous
  Country: US (occurrence: US)
  Receive Date: 20130228
  Receipt Date: 20130228
  Transmission Date: 20140127
  Serious: Yes (Death)
  Sender: FDA-Public Use
  Company Number: PHEH2013US004657

PATIENT
  Sex: Female

DRUGS (1)
  1. RECLAST [Suspect]
     Indication: SENILE OSTEOPOROSIS
     Dosage: 5 MG, ONCE ANNUALLY
     Route: 042
     Dates: start: 20090911

REACTIONS (3)
  - Sepsis [Fatal]
  - Oesophageal motility disorder [Fatal]
  - Connective tissue disorder [Fatal]
